FAERS Safety Report 6564599-1 (Version None)
Quarter: 2010Q1

REPORT INFORMATION
  Report Type: 
  Country: None (occurrence: None)
  Receive Date: 20100201
  Receipt Date: 20100122
  Transmission Date: 20100710
  Serious: Yes (Hospitalization, Disabling, Other)
  Sender: FDA-Public Use
  Company Number: PHHY2009RU46513

PATIENT
  Sex: Female

DRUGS (1)
  1. VOLTAREN [Suspect]
     Indication: BACK PAIN
     Dosage: 1 DF, ONCE/SINGLE
     Route: 030
     Dates: start: 20091004

REACTIONS (9)
  - DEBRIDEMENT [None]
  - GAIT DISTURBANCE [None]
  - HYPOKINESIA [None]
  - INJECTION SITE EXTRAVASATION [None]
  - INJECTION SITE NECROSIS [None]
  - INJECTION SITE PAIN [None]
  - PNEUMONIA [None]
  - SCAR [None]
  - SOFT TISSUE NECROSIS [None]
